FAERS Safety Report 10039595 (Version 1)
Quarter: 2014Q1

REPORT INFORMATION
  Report Type: Report from Study
  Country: DE (occurrence: DE)
  Receive Date: 20140326
  Receipt Date: 20140326
  Transmission Date: 20141002
  Serious: Yes (Other)
  Sender: FDA-Public Use
  Company Number: DE-VERTEX PHARMACEUTICALS INC-2014-001582

PATIENT
  Age: 45 Year
  Sex: Female

DRUGS (11)
  1. VX-950 (TELAPREVIR) [Suspect]
     Indication: HEPATITIS C
     Dosage: 750 MG, TID
     Route: 048
     Dates: start: 20130816, end: 20130918
  2. PEGINTERFERON LAMBDA-1A [Suspect]
     Indication: CHRONIC HEPATITIS C
     Dosage: 180 ?G, QW
     Route: 058
     Dates: start: 20130816, end: 20130918
  3. PEGINTERFERON ALFA-2A [Suspect]
     Indication: CHRONIC HEPATITIS C
     Dosage: 180 ?G, QW
     Route: 058
     Dates: start: 20130816, end: 20130918
  4. RIBAVIRIN [Suspect]
     Indication: CHRONIC HEPATITIS C
     Dosage: 1000 MG, QD
     Route: 048
     Dates: start: 20130816
  5. RIBAVIRIN [Suspect]
     Dosage: 600 MG, QD
     Route: 048
     Dates: start: 20130916, end: 20130918
  6. MCP [Concomitant]
     Dates: start: 20130819
  7. DERMATOP [Concomitant]
     Dates: start: 20130819
  8. FORTIMEL [Concomitant]
     Dates: start: 20130822
  9. PARACETAMOL [Concomitant]
     Dates: start: 20130916
  10. CLOBETASOL [Concomitant]
     Dates: start: 20130916
  11. OPTIDERM (LAUROMACROGOL 400/UREA) [Concomitant]
     Dates: start: 20130916

REACTIONS (2)
  - Drug-induced liver injury [Recovered/Resolved]
  - Jaundice [Recovered/Resolved]
